FAERS Safety Report 19938467 (Version 1)
Quarter: 2021Q4

REPORT INFORMATION
  Report Type: Spontaneous
  Country: CN (occurrence: CN)
  Receive Date: 20211011
  Receipt Date: 20211011
  Transmission Date: 20220303
  Serious: Yes (Hospitalization)
  Sender: FDA-Public Use
  Company Number: CN-BAXTER-2021BAX023844

PATIENT
  Age: 2 Year
  Sex: Male
  Weight: 13.5 kg

DRUGS (6)
  1. CYCLOPHOSPHAMIDE [Suspect]
     Active Substance: CYCLOPHOSPHAMIDE
     Indication: Acute lymphocytic leukaemia
     Dosage: DILUTED WITH  (4:1) GLUCOSE AND SODIUM CHLORIDE INJECTION 250ML
     Route: 041
     Dates: start: 20191018, end: 20191018
  2. DEXTROSE\SODIUM CHLORIDE [Suspect]
     Active Substance: DEXTROSE\SODIUM CHLORIDE
     Indication: Medication dilution
     Dosage: COMBINED WITH ENDOXAN
     Route: 041
     Dates: start: 20191018, end: 20191018
  3. DEXTROSE\SODIUM CHLORIDE [Suspect]
     Active Substance: DEXTROSE\SODIUM CHLORIDE
     Indication: Pyrexia
     Dosage: COMBINED WITH CYTOSAR
     Route: 041
     Dates: start: 20191018, end: 20191021
  4. CYTARABINE [Suspect]
     Active Substance: CYTARABINE
     Indication: Acute lymphocytic leukaemia
     Dosage: DILUTED WITH (4:1) GLUCOSE AND SODIUM CHLORIDE INJECTION 250ML
     Route: 041
     Dates: start: 20191018, end: 20191021
  5. MERCAPTOPURINE [Suspect]
     Active Substance: MERCAPTOPURINE
     Indication: Acute lymphocytic leukaemia
     Dosage: TABLETS
     Route: 048
     Dates: start: 20191018, end: 20191024
  6. PEGASPARGASE [Concomitant]
     Active Substance: PEGASPARGASE
     Indication: Acute lymphocytic leukaemia
     Route: 030
     Dates: start: 20191021, end: 20191021

REACTIONS (2)
  - Myelosuppression [Recovering/Resolving]
  - Sepsis [Recovering/Resolving]

NARRATIVE: CASE EVENT DATE: 20191028
